FAERS Safety Report 4876323-9 (Version None)
Quarter: 2006Q1

REPORT INFORMATION
  Report Type: 
  Country: None (occurrence: None)
  Receive Date: 20060110
  Receipt Date: 20051027
  Transmission Date: 20060701
  Serious: Yes (Death)
  Sender: FDA-Public Use
  Company Number: PHBS2005BR15913

PATIENT
  Age: 51 Year
  Sex: Male

DRUGS (1)
  1. DIOCOMB SI [Suspect]
     Indication: HYPERTENSION
     Dosage: VALS 160 / SIMV 20 MG/DAY
     Route: 048

REACTIONS (2)
  - FEELING ABNORMAL [None]
  - INFARCTION [None]
